FAERS Safety Report 9630889 (Version 2)
Quarter: 2013Q4

REPORT INFORMATION
  Report Type: Spontaneous
  Country: US (occurrence: None)
  Receive Date: 20131015
  Receipt Date: 20131126
  Transmission Date: 20140711
  Serious: Yes (Hospitalization)
  Sender: FDA-Public Use
  Company Number: SYM-2013-11429

PATIENT
  Age: 58 Year
  Sex: Female

DRUGS (3)
  1. XENAZINE [Suspect]
     Indication: HUNTINGTON^S DISEASE
     Dosage: 2 IN 1 D
     Dates: start: 20130312
  2. XENAZINE [Suspect]
     Indication: CHOREA
     Dosage: 2 IN 1 D
     Dates: start: 20130312
  3. XENAZINE [Suspect]
     Indication: BALLISMUS
     Dosage: 2 IN 1 D
     Dates: start: 20130312

REACTIONS (1)
  - Investigation [None]
